FAERS Safety Report 9841881 (Version 1)
Quarter: 2013Q4

REPORT INFORMATION
  Report Type: Spontaneous
  Country: DE (occurrence: None)
  Receive Date: 20131211
  Receipt Date: 20131211
  Transmission Date: 20140711
  Serious: Yes (Hospitalization, Disabling)
  Sender: FDA-Public Use
  Company Number: TKT01200600192

PATIENT
  Age: 12 Year
  Sex: Male

DRUGS (2)
  1. IDURSULFASE [Suspect]
     Indication: MUCOPOLYSACCHARIDOSIS II
     Dosage: 0.52 MG/KG, 1 IN 1 WK), INTRAVENOUS DRIP
     Route: 041
  2. IDURSULFASE [Suspect]
     Dosage: 0.52 MG/KG, 1 IN 1 WK), INTRAVENOUS DRIP
     Route: 041

REACTIONS (5)
  - Urticaria [None]
  - Hypersensitivity [None]
  - Stridor [None]
  - Cough [None]
  - Infusion related reaction [None]
